FAERS Safety Report 25866889 (Version 1)
Quarter: 2025Q4

REPORT INFORMATION
  Report Type: Spontaneous
  Country: US (occurrence: US)
  Receive Date: 20251001
  Receipt Date: 20251001
  Transmission Date: 20260118
  Serious: Yes (Other)
  Sender: AMGEN
  Company Number: US-AMGEN-USASP2025193111

PATIENT
  Age: 59 Year
  Sex: Male
  Weight: 78.727 kg

DRUGS (9)
  1. PREDNISONE [Suspect]
     Active Substance: PREDNISONE
     Indication: Product used for unknown indication
     Dosage: 1 MILLIGRAM, QD (4 TAB)
     Route: 048
  2. PREDNISONE [Suspect]
     Active Substance: PREDNISONE
     Dosage: 10 MILLIGRAM, QD (1 TABLET)
     Route: 048
  3. PREDNISONE [Suspect]
     Active Substance: PREDNISONE
     Dosage: 20 MILLIGRAM, QD
     Route: 048
  4. PREDNISONE [Suspect]
     Active Substance: PREDNISONE
     Dosage: 15 MILLIGRAM
     Route: 048
  5. FINASTERIDE [Concomitant]
     Active Substance: FINASTERIDE
     Dosage: 5 MILLIGRAM, QD
     Route: 048
  6. LISINOPRIL [Concomitant]
     Active Substance: LISINOPRIL
     Dosage: 10 MILLIGRAM, QD
     Route: 048
     Dates: end: 20250904
  7. PRILOSEC OTC [Concomitant]
     Active Substance: OMEPRAZOLE MAGNESIUM
     Dosage: 20 MILLIGRAM
     Route: 065
  8. ACYCLOVIR [Concomitant]
     Active Substance: ACYCLOVIR
     Dosage: 400 MILLIGRAM, Q8H
     Route: 048
  9. TYLENOL [Concomitant]
     Active Substance: ACETAMINOPHEN
     Dosage: 1000 MILLIGRAM (325 MG)
     Route: 048
     Dates: start: 20250331

REACTIONS (14)
  - Anti-neutrophil cytoplasmic antibody positive vasculitis [Unknown]
  - Cutaneous vasculitis [Unknown]
  - Gangrene [Unknown]
  - Tracheal stenosis [Unknown]
  - Granulomatosis with polyangiitis [Unknown]
  - Immunosuppression [Unknown]
  - Ear pain [Unknown]
  - Fatigue [Unknown]
  - Sinus disorder [Unknown]
  - Dacryocystitis [Unknown]
  - Lacrimation increased [Recovering/Resolving]
  - Arthralgia [Unknown]
  - Osteopenia [Unknown]
  - Ear discomfort [Unknown]
